FAERS Safety Report 8956523 (Version 2)
Quarter: 2012Q4

REPORT INFORMATION
  Report Type: Report from Study
  Country: ES (occurrence: ES)
  Receive Date: 20121210
  Receipt Date: 20121221
  Transmission Date: 20130627
  Serious: Yes (Life-Threatening, Hospitalization, Other)
  Sender: FDA-Public Use
  Company Number: ES-JNJFOC-20121200428

PATIENT
  Sex: Male
  Weight: 86 kg

DRUGS (1)
  1. REMICADE [Suspect]
     Indication: COLITIS ULCERATIVE
     Dosage: at 0-2-6 weeks (induction)
     Route: 042
     Dates: start: 20110208, end: 20110321

REACTIONS (3)
  - Colectomy [Recovered/Resolved]
  - Anastomotic leak [Recovering/Resolving]
  - Septic shock [Recovered/Resolved]
